FAERS Safety Report 5813896-3 (Version None)
Quarter: 2008Q3

REPORT INFORMATION
  Report Type: 
  Country: None (occurrence: None)
  Receive Date: 20080717
  Receipt Date: 20080707
  Transmission Date: 20090109
  Serious: Yes (Hospitalization)
  Sender: FDA-Public Use
  Company Number: TR-AMGEN-US295051

PATIENT
  Sex: Female
  Weight: 76.3 kg

DRUGS (3)
  1. ENBREL [Suspect]
     Indication: RHEUMATOID ARTHRITIS
     Route: 058
     Dates: start: 20051121, end: 20080416
  2. INDOMETHACIN [Concomitant]
     Dosage: UNSPECIFIED
     Route: 065
     Dates: start: 19870101, end: 20080620
  3. METHOTREXATE [Concomitant]
     Indication: RHEUMATOID ARTHRITIS
     Route: 065
     Dates: start: 19980112, end: 20071011

REACTIONS (1)
  - PROTEINURIA [None]
